FAERS Safety Report 9025595 (Version 1)
Quarter: 2013Q1

REPORT INFORMATION
  Report Type: Spontaneous
  Country: GB (occurrence: GB)
  Receive Date: 20130123
  Receipt Date: 20130123
  Transmission Date: 20140127
  Serious: Yes (Disabling)
  Sender: FDA-Public Use
  Company Number: GB-RANBAXY-2013R1-64101

PATIENT
  Age: 50 Year
  Sex: Female
  Weight: 64.39 kg

DRUGS (1)
  1. AMOXICILLIN [Suspect]
     Indication: SINUSITIS
     Dosage: 500 MG, TID
     Route: 048
     Dates: start: 20121004

REACTIONS (3)
  - Migraine [Not Recovered/Not Resolved]
  - Nausea [Not Recovered/Not Resolved]
  - Fatigue [Not Recovered/Not Resolved]
